FAERS Safety Report 5589852-X (Version None)
Quarter: 2008Q1

REPORT INFORMATION
  Report Type: 
  Country: None (occurrence: None)
  Receive Date: 20080114
  Receipt Date: 20010223
  Transmission Date: 20080703
  Serious: Yes (Death, Hospitalization, Congenital Anomaly)
  Sender: FDA-Public Use
  Company Number: FR-MERCK-01026157B1

PATIENT
  Age: 0 Day
  Sex: Female
  Weight: 3 kg

DRUGS (10)
  1. COZAAR [Suspect]
     Indication: HYPERTENSION
     Route: 064
     Dates: start: 20000917, end: 20010130
  2. METHYLDOPA [Concomitant]
     Indication: HYPERTENSION
     Route: 064
     Dates: end: 20000101
  3. CLONIDINE HYDROCHLORIDE [Concomitant]
     Indication: HYPERTENSION
     Route: 064
     Dates: end: 20000101
  4. PROPOFOL [Concomitant]
     Indication: ANAESTHESIA
     Route: 064
     Dates: start: 20001206, end: 20001206
  5. ISOFLURANE [Concomitant]
     Indication: ANAESTHESIA
     Route: 064
     Dates: start: 20001206, end: 20001206
  6. CEFATRIZINE [Concomitant]
     Indication: NASOPHARYNGITIS
     Route: 064
     Dates: start: 20001225
  7. ALPHA AMYLASE [Concomitant]
     Indication: NASOPHARYNGITIS
     Route: 064
     Dates: start: 20001225
  8. ACETAMINOPHEN [Concomitant]
     Indication: NASOPHARYNGITIS
     Route: 064
  9. HELICIDINE [Concomitant]
     Indication: NASOPHARYNGITIS
     Route: 064
  10. TRIAMCINOLONE ACETONIDE [Concomitant]
     Indication: NASOPHARYNGITIS
     Route: 064

REACTIONS (24)
  - ADRENAL DISORDER [None]
  - APGAR SCORE LOW [None]
  - BRADYCARDIA NEONATAL [None]
  - BRAIN OEDEMA [None]
  - CAESAREAN SECTION [None]
  - CEREBRAL CALCIFICATION [None]
  - CEREBRAL HAEMORRHAGE NEONATAL [None]
  - CONGENITAL ANOMALY [None]
  - CONGENITAL PULMONARY HYPERTENSION [None]
  - DRUG EXPOSURE DURING PREGNANCY [None]
  - DYSMORPHISM [None]
  - INFARCTION [None]
  - KIDNEY ENLARGEMENT [None]
  - LOW SET EARS [None]
  - MULTI-ORGAN FAILURE [None]
  - NEONATAL HYPOTENSION [None]
  - NEONATAL RESPIRATORY DISTRESS SYNDROME [None]
  - OLIGOHYDRAMNIOS [None]
  - PATENT DUCTUS ARTERIOSUS [None]
  - PULMONARY HYPOPLASIA [None]
  - RENAL FAILURE ACUTE [None]
  - RENAL INFARCT [None]
  - SKULL MALFORMATION [None]
  - TALIPES [None]
